FAERS Safety Report 8433954-7 (Version None)
Quarter: 2012Q2

REPORT INFORMATION
  Report Type: 
  Country: None (occurrence: None)
  Receive Date: 20120613
  Receipt Date: 20120530
  Transmission Date: 20120825
  Serious: Yes (Life-Threatening, Hospitalization)
  Sender: FDA-Public Use
  Company Number: JP-ROCHE-1037052

PATIENT
  Sex: Male
  Weight: 57 kg

DRUGS (17)
  1. AZULFIDINE [Concomitant]
     Indication: RHEUMATOID VASCULITIS
     Route: 048
     Dates: start: 20030701, end: 20110726
  2. ASPARA-CA [Concomitant]
     Indication: OSTEOPOROSIS PROPHYLAXIS
     Route: 048
     Dates: start: 20030101
  3. ACTEMRA [Suspect]
     Indication: RHEUMATOID ARTHRITIS
     Dosage: DOSAGE IS UNCERTAIN.
     Route: 041
     Dates: start: 20110621, end: 20120202
  4. ACTONEL [Concomitant]
     Indication: OSTEOPOROSIS PROPHYLAXIS
     Route: 048
     Dates: start: 20030101
  5. CYTOTEC [Concomitant]
     Indication: GASTRIC DISORDER
     Route: 048
     Dates: start: 20030101
  6. RHEUMATREX [Suspect]
     Route: 048
  7. FOLIAMIN [Concomitant]
     Indication: RHEUMATOID VASCULITIS
     Route: 048
     Dates: start: 20030101
  8. RIMATIL [Concomitant]
     Indication: RHEUMATOID VASCULITIS
     Route: 048
     Dates: start: 20030101, end: 20110726
  9. PREDNISOLONE [Suspect]
     Indication: RHEUMATOID VASCULITIS
     Dosage: 2MG ,10MG
     Route: 048
     Dates: start: 20030101
  10. MARZULENE-S [Concomitant]
     Indication: GASTRIC DISORDER
     Route: 048
     Dates: start: 20030101
  11. MIYA BM [Concomitant]
     Dosage: DOSAGE IS UNCERTAIN.
     Route: 048
     Dates: start: 20111015
  12. RHEUMATREX [Suspect]
     Indication: RHEUMATOID VASCULITIS
     Route: 048
     Dates: start: 20030801
  13. RABEPRAZOLE SODIUM [Concomitant]
     Indication: GASTRIC DISORDER
     Route: 048
     Dates: start: 20100520
  14. RHEUMATREX [Suspect]
     Route: 048
  15. MOBIC [Concomitant]
     Indication: PAIN
     Route: 048
     Dates: start: 20030101
  16. ONEALFA [Concomitant]
     Indication: OSTEOPOROSIS PROPHYLAXIS
     Route: 048
     Dates: start: 20030101
  17. VOLTAREN [Concomitant]
     Indication: PAIN
     Route: 054
     Dates: start: 20030101

REACTIONS (4)
  - HYPERLIPIDAEMIA [None]
  - PNEUMOCYSTIS JIROVECI PNEUMONIA [None]
  - PERIPHERAL ARTERIAL OCCLUSIVE DISEASE [None]
  - ARRHYTHMIA [None]
